FAERS Safety Report 5022843-6 (Version None)
Quarter: 2006Q2

REPORT INFORMATION
  Report Type: 
  Country: None (occurrence: None)
  Receive Date: 20060426
  Receipt Date: 20060206
  Transmission Date: 20061013
  Serious: Yes (Other)
  Sender: FDA-Public Use
  Company Number: 2006018794

PATIENT
  Age: 73 Year
  Sex: Male
  Weight: 86.1834 kg

DRUGS (13)
  1. LYRICA [Suspect]
     Indication: DIABETIC NEUROPATHY
     Dosage: 100 MG (50 MG, 2 IN 1 D), ORAL
     Route: 048
     Dates: start: 20060203
  2. ALLOPURINOL [Concomitant]
  3. ASPIRIN [Concomitant]
  4. COREG [Concomitant]
  5. FUROSEMIDE [Concomitant]
  6. GLIPIZIDE [Concomitant]
  7. IRON (IRON) [Concomitant]
  8. PLAVIX [Concomitant]
  9. PRANDIN [Concomitant]
  10. QUINAPRIL [Concomitant]
  11. SPIRONOLACTONE [Concomitant]
  12. WELLBUTRIN [Concomitant]
  13. ZOCOR [Concomitant]

REACTIONS (8)
  - BALANCE DISORDER [None]
  - DRY MOUTH [None]
  - DYSARTHRIA [None]
  - DYSPNOEA [None]
  - FATIGUE [None]
  - FEELING DRUNK [None]
  - HYPERTENSION [None]
  - WEIGHT INCREASED [None]
